FAERS Safety Report 9258191 (Version 1)
Quarter: 2013Q2

REPORT INFORMATION
  Report Type: Spontaneous
  Country: GB (occurrence: GB)
  Receive Date: 20130426
  Receipt Date: 20130426
  Transmission Date: 20140414
  Serious: Yes (Hospitalization)
  Sender: FDA-Public Use
  Company Number: PHFR2013GB002301

PATIENT
  Sex: Male

DRUGS (1)
  1. TEGRETOL RETARD [Suspect]
     Indication: EPILEPSY
     Dosage: 400 MG, BID
     Route: 048

REACTIONS (1)
  - Intestinal obstruction [Not Recovered/Not Resolved]
